FAERS Safety Report 7161245-3 (Version None)
Quarter: 2010Q4

REPORT INFORMATION
  Report Type: 
  Country: None (occurrence: None)
  Receive Date: 20101210
  Receipt Date: 20101210
  Transmission Date: 20110411
  Serious: Yes (Other)
  Sender: FDA-Public Use
  Company Number: None

PATIENT
  Sex: Female

DRUGS (1)
  1. ACTONEL [Suspect]
     Indication: OSTEOPOROSIS
     Dosage: 150MG ONCE PO
     Route: 048
     Dates: start: 20101201, end: 20101201

REACTIONS (4)
  - DECREASED APPETITE [None]
  - GAIT DISTURBANCE [None]
  - LIP SWELLING [None]
  - STOMATITIS [None]
